FAERS Safety Report 11226792 (Version 1)
Quarter: 2015Q2

REPORT INFORMATION
  Report Type: Spontaneous
  Country: US (occurrence: US)
  Receive Date: 20150630
  Receipt Date: 20150630
  Transmission Date: 20150821
  Serious: No
  Sender: FDA-Public Use
  Company Number: US-SA-2015SA053930

PATIENT
  Sex: Female

DRUGS (12)
  1. TRAMADOL [Concomitant]
     Active Substance: TRAMADOL
  2. AUBAGIO [Suspect]
     Active Substance: TERIFLUNOMIDE
     Indication: MULTIPLE SCLEROSIS
     Route: 048
     Dates: start: 20140228
  3. BACLOFEN. [Concomitant]
     Active Substance: BACLOFEN
  4. AMPYRA [Concomitant]
     Active Substance: DALFAMPRIDINE
  5. KLOR-CON [Concomitant]
     Active Substance: POTASSIUM CHLORIDE
  6. FUROSEMIDE. [Concomitant]
     Active Substance: FUROSEMIDE
  7. AMMONIUM LACTATE. [Concomitant]
     Active Substance: AMMONIUM LACTATE
  8. OXYBUTYNIN CHLORIDE. [Concomitant]
     Active Substance: OXYBUTYNIN CHLORIDE
  9. SYNTHROID [Concomitant]
     Active Substance: LEVOTHYROXINE SODIUM
  10. IBANDRONATE SODIUM. [Concomitant]
     Active Substance: IBANDRONATE SODIUM
  11. GLIPIZIDE. [Concomitant]
     Active Substance: GLIPIZIDE
  12. SIMVASTATIN. [Concomitant]
     Active Substance: SIMVASTATIN

REACTIONS (1)
  - Chromaturia [Unknown]
